FAERS Safety Report 14805238 (Version 1)
Quarter: 2018Q2

REPORT INFORMATION
  Report Type: Spontaneous
  Country: US (occurrence: US)
  Receive Date: 20180425
  Receipt Date: 20180425
  Transmission Date: 20180711
  Serious: Yes (Other)
  Sender: FDA-Public Use
  Company Number: US-ALEMBIC PHARMACUETICALS LIMITED-2018SCAL000283

PATIENT

DRUGS (1)
  1. FLUOXETINE HYDROCHLORIDE. [Suspect]
     Active Substance: FLUOXETINE HYDROCHLORIDE
     Indication: PRODUCT USED FOR UNKNOWN INDICATION
     Dosage: 40 MILLIGRAM, QD
     Route: 048
     Dates: start: 20180219

REACTIONS (4)
  - Throat irritation [Recovered/Resolved]
  - Chemical burn of gastrointestinal tract [Recovered/Resolved]
  - Product substitution issue [Unknown]
  - Oesophageal pain [Recovered/Resolved]

NARRATIVE: CASE EVENT DATE: 20180304
